FAERS Safety Report 20637118 (Version 2)
Quarter: 2022Q1

REPORT INFORMATION
  Report Type: Report from Study
  Country: US (occurrence: US)
  Receive Date: 20220325
  Receipt Date: 20220330
  Transmission Date: 20220423
  Serious: Yes (Other)
  Sender: FDA-Public Use
  Company Number: US-ABBVIE-22K-163-4330303-00

PATIENT
  Sex: Female

DRUGS (1)
  1. SYNTHROID [Suspect]
     Active Substance: LEVOTHYROXINE SODIUM
     Indication: Product used for unknown indication
     Route: 048

REACTIONS (8)
  - Surgery [Unknown]
  - Coronary arterial stent insertion [Unknown]
  - Gastric bypass [Unknown]
  - Abdominal panniculectomy [Unknown]
  - Excessive skin [Unknown]
  - Mammoplasty [Unknown]
  - Carpal tunnel syndrome [Unknown]
  - Hysterectomy [Unknown]

NARRATIVE: CASE EVENT DATE: 19900101
